FAERS Safety Report 7878098-8 (Version None)
Quarter: 2011Q4

REPORT INFORMATION
  Report Type: 
  Country: None (occurrence: None)
  Receive Date: 20111101
  Receipt Date: 20111020
  Transmission Date: 20120403
  Serious: No
  Sender: FDA-Public Use
  Company Number: US-BIOGENIDEC-2011BI037402

PATIENT
  Age: 51 Year
  Sex: Female

DRUGS (1)
  1. TYSABRI [Suspect]
     Indication: MULTIPLE SCLEROSIS
     Route: 042
     Dates: start: 20090828

REACTIONS (6)
  - LOWER RESPIRATORY TRACT INFECTION [None]
  - BALANCE DISORDER [None]
  - PYREXIA [None]
  - PRODUCTIVE COUGH [None]
  - FATIGUE [None]
  - THROAT IRRITATION [None]
